FAERS Safety Report 26149125 (Version 1)
Quarter: 2025Q4

REPORT INFORMATION
  Report Type: Spontaneous
  Country: EU (occurrence: EU)
  Receive Date: 20251212
  Receipt Date: 20251212
  Transmission Date: 20260117
  Serious: Yes (Hospitalization)
  Sender: RANBAXY
  Company Number: None

PATIENT
  Age: 62 Year
  Sex: Female
  Weight: 118 kg

DRUGS (7)
  1. PREGABALIN [Suspect]
     Active Substance: PREGABALIN
     Indication: Neuralgia
     Dosage: 300 MILLIGRAM, DAILY
     Route: 048
     Dates: start: 20250820, end: 20250822
  2. CLINDAMYCIN [Suspect]
     Active Substance: CLINDAMYCIN
     Indication: Infection
     Dosage: 2400 MILLIGRAM, DAILY
     Route: 042
     Dates: start: 20250814, end: 20250819
  3. CLINDAMYCIN [Suspect]
     Active Substance: CLINDAMYCIN
     Dosage: 2400 MILLIGRAM, DAILY
     Route: 048
     Dates: start: 20250819, end: 20250821
  4. REPEVAX [Suspect]
     Active Substance: DIPHTHERIA AND TETANUS TOXOIDS AND ACELLULAR PERTUSSIS ADSORBED AND INACTIVATED POLIOVIRUS VACCINE
     Indication: Immunisation
     Dosage: 1 DOSAGE FORM, TOTAL 1
     Route: 030
     Dates: start: 20250820, end: 20250820
  5. ENOXAPARIN [Suspect]
     Active Substance: ENOXAPARIN
     Indication: Thrombosis prophylaxis
     Dosage: 6000 INTERNATIONAL UNIT, IN TOTAL
     Route: 058
     Dates: start: 20250814, end: 20250824
  6. FUNGIZONE [Suspect]
     Active Substance: AMPHOTERICIN B
     Indication: Oral fungal infection
     Dosage: 300 MILLIGRAM, DAILY
     Route: 048
     Dates: start: 20250818, end: 20250823
  7. BUMETANIDE [Suspect]
     Active Substance: BUMETANIDE
     Indication: Product used for unknown indication
     Dosage: 2 MILLIGRAM, DAILY
     Route: 048
     Dates: start: 20250818, end: 20250821

REACTIONS (1)
  - Rash maculo-papular [Recovered/Resolved]

NARRATIVE: CASE EVENT DATE: 20250822
